FAERS Safety Report 4831682-8 (Version None)
Quarter: 2005Q4

REPORT INFORMATION
  Report Type: 
  Country: None (occurrence: None)
  Receive Date: 20051116
  Receipt Date: 20051024
  Transmission Date: 20060501
  Serious: Yes (Hospitalization)
  Sender: FDA-Public Use
  Company Number: 200513644GDS

PATIENT
  Age: 17 Year
  Sex: Female

DRUGS (1)
  1. CIPRO [Suspect]
     Indication: PYELONEPHRITIS
     Dosage: 400 MG, TOTAL DAILY, INTRAVENOUS
     Route: 042
     Dates: start: 20051018

REACTIONS (2)
  - HYPERAEMIA [None]
  - INJECTION SITE REACTION [None]
